FAERS Safety Report 9959599 (Version 1)
Quarter: 2014Q1

REPORT INFORMATION
  Report Type: Report from Study
  Country: US (occurrence: US)
  Receive Date: 20140305
  Receipt Date: 20140305
  Transmission Date: 20141002
  Serious: No
  Sender: FDA-Public Use
  Company Number: US-ABBVIE-13P-163-1105863-00

PATIENT
  Age: 58 Year
  Sex: Female

DRUGS (16)
  1. HUMIRA [Suspect]
     Indication: CROHN^S DISEASE
     Dates: start: 20130531, end: 20130531
  2. HUMIRA [Suspect]
     Dates: start: 20130614, end: 20130614
  3. CO Q 10 [Concomitant]
     Indication: VITAMIN SUPPLEMENTATION
  4. DETROL LA [Concomitant]
     Indication: URINARY INCONTINENCE
  5. ELMIRON [Concomitant]
     Indication: BLADDER DISORDER
  6. HYDROCHLOROTHIAZIDE [Concomitant]
     Indication: HYPERTENSION
     Dosage: 10MG/6.25MG
  7. ALLERTEC [Concomitant]
     Indication: HYPERSENSITIVITY
     Dosage: 10MG DAILY
  8. ASA [Concomitant]
     Indication: PRODUCT USED FOR UNKNOWN INDICATION
  9. IRON [Concomitant]
     Indication: PRODUCT USED FOR UNKNOWN INDICATION
     Dosage: 3.25MG DAILY
  10. MULTIVITAMIN [Concomitant]
     Indication: PRODUCT USED FOR UNKNOWN INDICATION
     Dosage: DAILY
  11. B12 [Concomitant]
     Indication: PRODUCT USED FOR UNKNOWN INDICATION
     Route: 060
  12. CALCIUM [Concomitant]
     Indication: PRODUCT USED FOR UNKNOWN INDICATION
  13. VITAMIN D3 [Concomitant]
     Indication: PRODUCT USED FOR UNKNOWN INDICATION
  14. IMODIUM [Concomitant]
     Indication: DIARRHOEA
  15. WELCHOL [Concomitant]
     Indication: DIARRHOEA
     Dosage: ONLY TAKES IT IF GOING OUT FOR EXTENDED PERIOD
  16. LOSARTAN [Concomitant]
     Indication: BLOOD PRESSURE

REACTIONS (1)
  - Injection site pain [Recovered/Resolved]
